FAERS Safety Report 13620357 (Version 7)
Quarter: 2018Q1

REPORT INFORMATION
  Report Type: Report from Study
  Country: CA (occurrence: CA)
  Receive Date: 20170607
  Receipt Date: 20180320
  Transmission Date: 20180508
  Serious: Yes (Hospitalization, Other)
  Sender: FDA-Public Use
  Company Number: CA-TAKEDA-2017TUS012258

PATIENT
  Age: 43 Year
  Sex: Female

DRUGS (5)
  1. METHOTREXATE. [Concomitant]
     Active Substance: METHOTREXATE
     Dosage: UNK UNK, 1/WEEK
  2. VEDOLIZUMAB [Suspect]
     Active Substance: VEDOLIZUMAB
     Indication: CROHN^S DISEASE
     Dosage: 300 MG, UNK
     Route: 042
     Dates: start: 20160714
  3. VENLAFAXINE [Concomitant]
     Active Substance: VENLAFAXINE HYDROCHLORIDE
     Dosage: 150 MG, BID
  4. CAL-D [Concomitant]
     Dosage: 1000 MG, BID
  5. VEDOLIZUMAB [Suspect]
     Active Substance: VEDOLIZUMAB
     Dosage: 300 MG, Q4WEEKS
     Route: 042
     Dates: start: 20170307

REACTIONS (9)
  - Pyrexia [Unknown]
  - Off label use [Unknown]
  - Dizziness [Unknown]
  - Erythema nodosum [Unknown]
  - Abscess [Not Recovered/Not Resolved]
  - Drug ineffective [Unknown]
  - Intestinal fistula [Not Recovered/Not Resolved]
  - Intestinal obstruction [Unknown]
  - Fatigue [Unknown]

NARRATIVE: CASE EVENT DATE: 2017
